FAERS Safety Report 5863626-4 (Version None)
Quarter: 2008Q3

REPORT INFORMATION
  Report Type: 
  Country: None (occurrence: None)
  Receive Date: 20080828
  Receipt Date: 20080816
  Transmission Date: 20090109
  Serious: Yes (Death, Other)
  Sender: FDA-Public Use
  Company Number: US-PFIZER INC-2008048857

PATIENT
  Sex: Male
  Weight: 113.4 kg

DRUGS (5)
  1. XALATAN [Suspect]
     Indication: GLAUCOMA
     Route: 047
  2. IBUPROFEN [Concomitant]
  3. PROPOXYPHENE [Concomitant]
  4. VITAMIN TAB [Concomitant]
  5. GENERAL NUTRIENTS [Concomitant]

REACTIONS (2)
  - DEATH [None]
  - KNEE ARTHROPLASTY [None]
